FAERS Safety Report 13906517 (Version 4)
Quarter: 2021Q1

REPORT INFORMATION
  Report Type: Report from Study
  Country: BR (occurrence: BR)
  Receive Date: 20170825
  Receipt Date: 20210225
  Transmission Date: 20210419
  Serious: Yes (Hospitalization, Other)
  Sender: FDA-Public Use
  Company Number: BR-TAKEDA-2017TUS017485

PATIENT
  Age: 38 Year
  Sex: Female

DRUGS (1)
  1. VEDOLIZUMAB [Suspect]
     Active Substance: VEDOLIZUMAB
     Indication: CROHN^S DISEASE
     Dosage: 300 MILLIGRAM
     Route: 042
     Dates: start: 20170509, end: 20210118

REACTIONS (5)
  - Vomiting [Unknown]
  - Pain [Unknown]
  - Obstruction gastric [Unknown]
  - Inappropriate schedule of product administration [Unknown]
  - Inflammation [Unknown]

NARRATIVE: CASE EVENT DATE: 20180110
